FAERS Safety Report 6901150-8 (Version None)
Quarter: 2010Q3

REPORT INFORMATION
  Report Type: 
  Country: None (occurrence: None)
  Receive Date: 20100803
  Receipt Date: 20100719
  Transmission Date: 20110219
  Serious: Yes (Hospitalization, Other)
  Sender: FDA-Public Use
  Company Number: US-BAYER-200939505NA

PATIENT
  Age: 23 Year
  Sex: Female
  Weight: 73 kg

DRUGS (8)
  1. YASMIN [Suspect]
     Indication: PRODUCT USED FOR UNKNOWN INDICATION
     Dates: start: 20050101, end: 20060901
  2. ASCORBIC ACID [Concomitant]
  3. ADVIL LIQUI-GELS [Concomitant]
  4. ZYRTEC [Concomitant]
  5. EFFEXOR XR [Concomitant]
  6. TYLENOL [Concomitant]
  7. LOVENOX [Concomitant]
  8. COUMADIN [Concomitant]

REACTIONS (7)
  - ANXIETY [None]
  - ANXIETY DISORDER DUE TO A GENERAL MEDICAL CONDITION [None]
  - CHEST DISCOMFORT [None]
  - DYSPNOEA [None]
  - PAIN [None]
  - PLEURISY [None]
  - PULMONARY EMBOLISM [None]
